FAERS Safety Report 16611048 (Version 4)
Quarter: 2020Q3

REPORT INFORMATION
  Report Type: Report from Study
  Country: US (occurrence: US)
  Receive Date: 20190722
  Receipt Date: 20200706
  Transmission Date: 20201102
  Serious: Yes (Other)
  Sender: FDA-Public Use
  Company Number: PHEH2019US030195

PATIENT
  Age: 18 Year
  Sex: Female
  Weight: 87 kg

DRUGS (3)
  1. KYMRIAH [Suspect]
     Active Substance: TISAGENLECLEUCEL
     Indication: B-CELL TYPE ACUTE LEUKAEMIA
     Dosage: 14 ML, ONCE/SINGLE
     Route: 041
     Dates: start: 20190606
  2. FLUDARABINE [Concomitant]
     Active Substance: FLUDARABINE PHOSPHATE
     Indication: CHEMOTHERAPY
     Route: 065
  3. CYCLOPHOSPHAMIDE. [Concomitant]
     Active Substance: CYCLOPHOSPHAMIDE
     Indication: CHEMOTHERAPY
     Route: 065

REACTIONS (10)
  - Neutrophil count decreased [Unknown]
  - Affect lability [Recovered/Resolved]
  - Thrombocytopenia [Unknown]
  - Haematocrit decreased [Unknown]
  - Haemoglobin decreased [Unknown]
  - Neurotoxicity [Recovered/Resolved]
  - Headache [Recovered/Resolved]
  - Lymphocyte count decreased [Unknown]
  - Hypogammaglobulinaemia [Recovered/Resolved]
  - White blood cell count decreased [Unknown]

NARRATIVE: CASE EVENT DATE: 20190614
